FAERS Safety Report 22368567 (Version 2)
Quarter: 2023Q2

REPORT INFORMATION
  Report Type: Spontaneous
  Country: US (occurrence: US)
  Receive Date: 20230525
  Receipt Date: 20230602
  Transmission Date: 20230722
  Serious: No
  Sender: FDA-Public Use
  Company Number: US-PFIZER INC-202300197720

PATIENT
  Age: 65 Year
  Sex: Female
  Weight: 73.48 kg

DRUGS (2)
  1. VYNDAQEL [Suspect]
     Active Substance: TAFAMIDIS MEGLUMINE
     Indication: Cardiac disorder
     Dosage: 80 MG, DAILY [TAKES 80MG PER DAY BY MOUTH]
     Route: 048
     Dates: start: 2020, end: 202106
  2. VYNDAQEL [Suspect]
     Active Substance: TAFAMIDIS MEGLUMINE
     Indication: Liver disorder

REACTIONS (9)
  - Malaise [Unknown]
  - Malaise [Unknown]
  - Asthenia [Unknown]
  - Pain in extremity [Unknown]
  - Gait disturbance [Unknown]
  - Emotional disorder [Unknown]
  - Disease progression [Unknown]
  - Product dose omission issue [Unknown]
  - Off label use [Unknown]

NARRATIVE: CASE EVENT DATE: 20210601
